FAERS Safety Report 6381137-7 (Version None)
Quarter: 2009Q3

REPORT INFORMATION
  Report Type: 
  Country: None (occurrence: None)
  Receive Date: 20090929
  Receipt Date: 20090925
  Transmission Date: 20100115
  Serious: Yes (Death)
  Sender: FDA-Public Use
  Company Number: PT-GILEAD-2009-0024478

PATIENT
  Sex: Male
  Weight: 60 kg

DRUGS (1)
  1. TRUVADA [Suspect]
     Indication: DRUG USE FOR UNKNOWN INDICATION
     Route: 048
     Dates: start: 20090203, end: 20090312

REACTIONS (3)
  - METABOLIC ACIDOSIS [None]
  - RENAL FAILURE ACUTE [None]
  - RHABDOMYOLYSIS [None]
